FAERS Safety Report 10434420 (Version 1)
Quarter: 2014Q3

REPORT INFORMATION
  Report Type: Spontaneous
  Country: BR (occurrence: BR)
  Receive Date: 20140905
  Receipt Date: 20140905
  Transmission Date: 20150326
  Serious: Yes (Other)
  Sender: FDA-Public Use
  Company Number: BR-ABBVIE-14P-020-1280505-00

PATIENT
  Sex: Female
  Weight: 58 kg

DRUGS (8)
  1. DONAREN [Concomitant]
     Active Substance: TRAZODONE HYDROCHLORIDE
     Indication: RELAXATION THERAPY
     Dosage: 50 MILLIGRAM; BEFORE SLEEP
     Route: 048
     Dates: start: 2012
  2. QUESTRAN [Concomitant]
     Active Substance: CHOLESTYRAMINE
     Indication: STEATORRHOEA
     Route: 048
     Dates: start: 2005
  3. OSTEONUTRI [Concomitant]
     Indication: BONE DISORDER
     Route: 048
     Dates: start: 201402
  4. CREON [Suspect]
     Active Substance: PANCRELIPASE AMYLASE\PANCRELIPASE LIPASE\PANCRELIPASE PROTEASE
     Indication: PANCREATIC DISORDER
     Dosage: DAILY DOSE 4 CAPSULE; BEFORE LUNCH/ BEFORE DINNER
     Dates: start: 2007
  5. DONAREN [Concomitant]
     Active Substance: TRAZODONE HYDROCHLORIDE
     Indication: SLEEP DISORDER THERAPY
  6. CENTRUM [Concomitant]
     Active Substance: VITAMINS
     Indication: VITAMIN SUPPLEMENTATION
     Route: 048
     Dates: start: 2010
  7. OMEPRAZOLE. [Concomitant]
     Active Substance: OMEPRAZOLE
     Indication: PROPHYLAXIS
     Dosage: 2 CAPSULES PER DAY (40 MG) AND 1 CAPSULE AT NIGHT, WHEN NEEDED
     Route: 048
  8. QUESTRAN [Concomitant]
     Active Substance: CHOLESTYRAMINE
     Indication: VITAMIN SUPPLEMENTATION

REACTIONS (20)
  - Pancreatic atrophy [Unknown]
  - Abdominal pain [Not Recovered/Not Resolved]
  - Osteopenia [Unknown]
  - Steatorrhoea [Unknown]
  - Spinal fracture [Unknown]
  - Dyspepsia [Not Recovered/Not Resolved]
  - Gastrooesophageal reflux disease [Not Recovered/Not Resolved]
  - Dizziness [Not Recovered/Not Resolved]
  - Blood pressure abnormal [Unknown]
  - Gastritis [Not Recovered/Not Resolved]
  - Abdominal distension [Unknown]
  - Blood cholesterol increased [Not Recovered/Not Resolved]
  - Weight increased [Unknown]
  - Flatulence [Not Recovered/Not Resolved]
  - Blood glucose increased [Not Recovered/Not Resolved]
  - Fluid retention [Unknown]
  - Fracture [Unknown]
  - Balance disorder [Not Recovered/Not Resolved]
  - Depression [Unknown]
  - Intestinal polyp [Not Recovered/Not Resolved]

NARRATIVE: CASE EVENT DATE: 2012
